FAERS Safety Report 5124662-9 (Version None)
Quarter: 2006Q4

REPORT INFORMATION
  Report Type: 
  Country: None (occurrence: None)
  Receive Date: 20061011
  Receipt Date: 20060907
  Transmission Date: 20070319
  Serious: Yes (Hospitalization)
  Sender: FDA-Public Use
  Company Number: PHHO2006JP15050

PATIENT
  Age: 76 Year
  Sex: Female
  Weight: 45 kg

DRUGS (6)
  1. DIOVAN [Suspect]
     Dosage: 80 MG, QD
     Route: 048
     Dates: start: 20030813, end: 20050319
  2. LANIRAPID [Concomitant]
     Indication: CARDIAC FAILURE
  3. DIART [Concomitant]
     Indication: CARDIAC FAILURE
  4. ALDACTONE [Concomitant]
     Indication: CARDIAC FAILURE
  5. MEXITIL [Concomitant]
     Indication: ARRHYTHMIA
  6. WARFARIN SODIUM [Concomitant]
     Indication: ATRIAL FIBRILLATION

REACTIONS (7)
  - CARDIAC FAILURE [None]
  - CARDIOMEGALY [None]
  - DYSPNOEA [None]
  - HYPERCAPNIA [None]
  - INFLUENZA [None]
  - ORTHOPNOEA [None]
  - PULMONARY CONGESTION [None]
